FAERS Safety Report 15288215 (Version 1)
Quarter: 2018Q3

REPORT INFORMATION
  Report Type: Spontaneous
  Country: US (occurrence: US)
  Receive Date: 20180802
  Receipt Date: 20180802
  Transmission Date: 20181010
  Serious: Yes (Life-Threatening, Hospitalization, Other)
  Sender: FDA-Public Use
  Company Number: None

PATIENT
  Age: 66 Year
  Sex: Female
  Weight: 101.15 kg

DRUGS (6)
  1. VALSARTAN HCTZ (PRODUCT RECALLED) [Suspect]
     Active Substance: HYDROCHLOROTHIAZIDE\VALSARTAN
     Indication: HYPERTENSION
     Dosage: OTHER FREQUENCY: 160/12.5 MG 1/2 DAILY; ORAL?
     Route: 048
     Dates: start: 20121216
  2. ESTRADIOL (HOT FLASHES) [Concomitant]
  3. LOW DOSE BAYER ASPIRIN 81 MG [Concomitant]
  4. LEVOTHYROXINE (HYPOTHYROID) [Concomitant]
  5. ATORVASTATIN (HIGH CHOLESTEROL) [Concomitant]
  6. CENTRUM GOLD FOR WOMEN MULTI VITAMIN [Concomitant]

REACTIONS (1)
  - Breast cancer [None]

NARRATIVE: CASE EVENT DATE: 20150304
